FAERS Safety Report 4266851-1 (Version None)
Quarter: 2004Q1

REPORT INFORMATION
  Report Type: 
  Country: None (occurrence: None)
  Receive Date: 20040108
  Receipt Date: 20031230
  Transmission Date: 20041129
  Serious: Yes (Hospitalization)
  Sender: FDA-Public Use
  Company Number: WAES 0312FRA00091

PATIENT
  Age: 62 Year
  Sex: Female

DRUGS (4)
  1. COSOPT [Suspect]
     Route: 047
     Dates: start: 20011128, end: 20030101
  2. OMEPRAZOLE [Suspect]
     Route: 048
  3. PAMIDRONATE DISODIUM [Suspect]
     Indication: MULTIPLE MYELOMA
     Route: 042
     Dates: start: 20020213, end: 20021107
  4. ZOLEDRONIC ACID [Suspect]
     Indication: MULTIPLE MYELOMA
     Route: 042
     Dates: start: 20021108

REACTIONS (6)
  - ANOREXIA [None]
  - DEMENTIA [None]
  - MEMORY IMPAIRMENT [None]
  - PCO2 DECREASED [None]
  - VOMITING [None]
  - WEIGHT DECREASED [None]
